FAERS Safety Report 19456684 (Version 4)
Quarter: 2021Q4

REPORT INFORMATION
  Report Type: Spontaneous
  Country: US (occurrence: US)
  Receive Date: 20210624
  Receipt Date: 20211203
  Transmission Date: 20220303
  Serious: Yes (Other)
  Sender: FDA-Public Use
  Company Number: US-JNJFOC-20210634765

PATIENT
  Age: 57 Year
  Sex: Female

DRUGS (14)
  1. ELMIRON [Suspect]
     Active Substance: PENTOSAN POLYSULFATE SODIUM
     Indication: Cystitis interstitial
     Route: 048
     Dates: start: 1994, end: 2020
  2. ESTRADIOL [Concomitant]
     Active Substance: ESTRADIOL
     Indication: Premature menopause
     Dates: start: 1994
  3. ESTRADIOL [Concomitant]
     Active Substance: ESTRADIOL
     Indication: Cystitis interstitial
  4. DIAZEPAM [Concomitant]
     Active Substance: DIAZEPAM
     Indication: Muscle relaxant therapy
     Dates: start: 2013
  5. DIAZEPAM [Concomitant]
     Active Substance: DIAZEPAM
     Indication: Cystitis interstitial
  6. RAPAFLO [Concomitant]
     Active Substance: SILODOSIN
     Indication: Bladder spasm
  7. RAPAFLO [Concomitant]
     Active Substance: SILODOSIN
     Indication: Cystitis interstitial
  8. LINZESS [Concomitant]
     Active Substance: LINACLOTIDE
     Indication: Crohn^s disease
     Dates: start: 2000
  9. METFORMIN [Concomitant]
     Active Substance: METFORMIN HYDROCHLORIDE
     Indication: Diabetes mellitus
     Dates: start: 2014
  10. HYDROXYZINE [Concomitant]
     Active Substance: HYDROXYZINE HYDROCHLORIDE
     Indication: Muscle relaxant therapy
     Dates: start: 2013
  11. THYROXINE [Concomitant]
     Active Substance: LEVOTHYROXINE
     Indication: Thyroid disorder
  12. AMITRIPTYLINE [Concomitant]
     Active Substance: AMITRIPTYLINE
     Indication: Bladder pain
     Dates: start: 1990
  13. CIMETIDINE [Concomitant]
     Active Substance: CIMETIDINE
     Indication: Bladder pain
     Dates: start: 1990
  14. OMEPRAZOLE [Concomitant]
     Active Substance: OMEPRAZOLE
     Indication: Bladder pain
     Dates: start: 2005

REACTIONS (3)
  - Dry age-related macular degeneration [Not Recovered/Not Resolved]
  - Maculopathy [Unknown]
  - Retinal pigmentation [Unknown]

NARRATIVE: CASE EVENT DATE: 20120101
